FAERS Safety Report 4335021-0 (Version None)
Quarter: 2004Q2

REPORT INFORMATION
  Report Type: 
  Country: None (occurrence: None)
  Receive Date: 20040408
  Receipt Date: 20030617
  Transmission Date: 20050107
  Serious: Yes (Hospitalization)
  Sender: FDA-Public Use
  Company Number: US-GLAXOSMITHKLINE-A0413819A

PATIENT
  Sex: Female

DRUGS (24)
  1. AVANDIA [Suspect]
     Indication: DIABETES MELLITUS NON-INSULIN-DEPENDENT
     Route: 048
     Dates: start: 20000101, end: 20030101
  2. UNIVASC [Concomitant]
     Dosage: 15MG PER DAY
     Route: 048
  3. ZOCOR [Concomitant]
     Dosage: 40MG PER DAY
     Route: 048
  4. SYNTHROID [Concomitant]
     Dosage: 88MCG PER DAY
     Route: 048
  5. GLUCOPHAGE [Concomitant]
     Dosage: 500MG PER DAY
     Route: 048
  6. LASIX [Concomitant]
     Dosage: 4MG PER DAY
     Route: 048
  7. COMBIVENT [Concomitant]
  8. PREMARIN [Concomitant]
     Dosage: 1.25MG PER DAY
     Route: 048
  9. VIOXX [Concomitant]
     Dosage: 25MG PER DAY
     Route: 048
  10. CLARITIN-D [Concomitant]
     Route: 048
  11. DILANTIN [Concomitant]
     Dosage: 100MG PER DAY
     Route: 048
  12. LANOXIN [Concomitant]
  13. ALBUTEROL [Concomitant]
  14. HEMOCYTE PLUS [Concomitant]
  15. KLOR-CON [Concomitant]
  16. NITROGLYCERIN [Concomitant]
  17. K-DUR 10 [Concomitant]
  18. REGULAR INSULIN [Concomitant]
  19. DIURETICS [Concomitant]
     Route: 042
  20. POTASSIUM SUPPLEMENT [Concomitant]
  21. VENTOLIN [Concomitant]
  22. ATROVENT [Concomitant]
  23. LOVENOX [Concomitant]
  24. LOPRESSOR [Concomitant]

REACTIONS (16)
  - ACUTE CORONARY SYNDROME [None]
  - ASTHMA [None]
  - CARDIAC FAILURE CONGESTIVE [None]
  - CARDIOMEGALY [None]
  - CHEST PAIN [None]
  - DRUG LEVEL DECREASED [None]
  - ELECTROCARDIOGRAM T WAVE ABNORMAL [None]
  - FLUID OVERLOAD [None]
  - FLUID RETENTION [None]
  - HAEMATOCRIT DECREASED [None]
  - HAEMOGLOBIN DECREASED [None]
  - HEART INJURY [None]
  - HEPATIC FAILURE [None]
  - HEPATOCELLULAR DAMAGE [None]
  - OEDEMA PERIPHERAL [None]
  - PULMONARY HYPERTENSION [None]
